FAERS Safety Report 9912620 (Version 1)
Quarter: 2014Q1

REPORT INFORMATION
  Report Type: Spontaneous
  Country: US (occurrence: None)
  Receive Date: 20140218
  Receipt Date: 20140218
  Transmission Date: 20141002
  Serious: Yes (Hospitalization)
  Sender: FDA-Public Use
  Company Number: None

PATIENT
  Age: 77 Year
  Sex: Female
  Weight: 58.9 kg

DRUGS (3)
  1. BENDAMUSTINE HYDROCHLORIDE [Suspect]
     Dosage: 90 MG/M2/DSE OF BENDA  DAYS 1 AND 4 OF CYCLE
  2. VELCADE [Suspect]
  3. RITUXIMAB [Suspect]

REACTIONS (1)
  - Confusional state [None]
